FAERS Safety Report 10644941 (Version 5)
Quarter: 2020Q1

REPORT INFORMATION
  Report Type: Spontaneous
  Country: JP (occurrence: JP)
  Receive Date: 20141211
  Receipt Date: 20200212
  Transmission Date: 20200409
  Serious: Yes (Other)
  Sender: FDA-Public Use
  Company Number: JP-009507513-1412JPN003258

PATIENT
  Age: 42 Year
  Sex: Male

DRUGS (7)
  1. TRUVADA [Concomitant]
     Active Substance: EMTRICITABINE\TENOFOVIR DISOPROXIL FUMARATE
     Indication: HIV INFECTION
     Dosage: UNK
     Route: 048
  2. LUNESTA [Concomitant]
     Active Substance: ESZOPICLONE
     Indication: DEPRESSION
     Dosage: 3 MILLIGRAM/DAY
     Route: 048
  3. ISENTRESS [Suspect]
     Active Substance: RALTEGRAVIR POTASSIUM
     Dosage: 400 MILLIGRAM, BID
     Route: 048
  4. STOCRIN TABLETS 600MG [Suspect]
     Active Substance: EFAVIRENZ
     Indication: HIV INFECTION
     Dosage: UNK
     Route: 048
  5. ISENTRESS [Suspect]
     Active Substance: RALTEGRAVIR POTASSIUM
     Indication: HIV INFECTION
     Dosage: UNK
     Route: 048
  6. SOLANAX [Concomitant]
     Active Substance: ALPRAZOLAM
     Indication: DEPRESSION
     Dosage: 0.8 MILLIGRAM/DAY
     Route: 048
  7. ISENTRESS [Suspect]
     Active Substance: RALTEGRAVIR POTASSIUM
     Dosage: 24000 MILLIGRAM, QD
     Route: 048

REACTIONS (6)
  - Drug level increased [Recovering/Resolving]
  - Blood bilirubin increased [Recovering/Resolving]
  - Suicidal ideation [Unknown]
  - Ventricular extrasystoles [Recovered/Resolved]
  - Psychiatric symptom [Unknown]
  - Overdose [Unknown]
